FAERS Safety Report 25553152 (Version 1)
Quarter: 2025Q3

REPORT INFORMATION
  Report Type: Report from Study
  Country: US (occurrence: US)
  Receive Date: 20250715
  Receipt Date: 20250715
  Transmission Date: 20251020
  Serious: Yes (Other)
  Sender: ALEXION PHARMACEUTICALS
  Company Number: US-AstraZeneca-CH-00907042A

PATIENT
  Sex: Female
  Weight: 100.3 kg

DRUGS (2)
  1. OLAPARIB [Suspect]
     Active Substance: OLAPARIB
     Indication: Breast cancer
     Dosage: 200 MILLIGRAM, BID
  2. CAPECITABINE [Concomitant]
     Active Substance: CAPECITABINE
     Route: 065

REACTIONS (3)
  - Headache [Unknown]
  - Diarrhoea [Unknown]
  - Neuropathy peripheral [Unknown]
